FAERS Safety Report 6127744-8 (Version None)
Quarter: 2009Q1

REPORT INFORMATION
  Report Type: 
  Country: None (occurrence: None)
  Receive Date: 20090323
  Receipt Date: 20090313
  Transmission Date: 20090719
  Serious: Yes (Hospitalization)
  Sender: FDA-Public Use
  Company Number: JP-NOVOPROD-282959

PATIENT
  Sex: Male
  Weight: 54 kg

DRUGS (4)
  1. NOVORAPID 30 MIX CHU [Suspect]
     Indication: TYPE 2 DIABETES MELLITUS
     Dosage: 24 IU, QD
     Route: 058
     Dates: start: 20070502
  2. HUMALOG [Concomitant]
  3. NOVOLIN R [Concomitant]
     Dates: start: 20071228
  4. AMARYL [Concomitant]

REACTIONS (3)
  - CELLULITIS [None]
  - INJECTION SITE HYPERSENSITIVITY [None]
  - URTICARIA [None]
